FAERS Safety Report 18132590 (Version 1)
Quarter: 2020Q3

REPORT INFORMATION
  Report Type: Spontaneous
  Country: US (occurrence: US)
  Receive Date: 20200811
  Receipt Date: 20200811
  Transmission Date: 20201103
  Serious: No
  Sender: FDA-Public Use
  Company Number: US-HTU-2019US019544

PATIENT
  Sex: Female

DRUGS (9)
  1. MELOXICAM. [Concomitant]
     Active Substance: MELOXICAM
  2. ZOLPIDEM TARTRATE. [Concomitant]
     Active Substance: ZOLPIDEM TARTRATE
  3. PANTOPRAZOLE [Concomitant]
     Active Substance: PANTOPRAZOLE
  4. ATORVASTATIN CALCIUM. [Concomitant]
     Active Substance: ATORVASTATIN CALCIUM
  5. BEXAROTENE. [Concomitant]
     Active Substance: BEXAROTENE
  6. VALCHLOR [Suspect]
     Active Substance: MECHLORETHAMINE
     Indication: CUTANEOUS T-CELL LYMPHOMA
     Dosage: THIN FILM, SINGLE
     Route: 061
  7. ACETAZOLAMIDE. [Concomitant]
     Active Substance: ACETAZOLAMIDE
  8. LEVOTHYROXINE SODIUM. [Concomitant]
     Active Substance: LEVOTHYROXINE SODIUM
  9. TRIAMCINOLONE ACETONIDE. [Concomitant]
     Active Substance: TRIAMCINOLONE ACETONIDE

REACTIONS (3)
  - Milia [Not Recovered/Not Resolved]
  - Condition aggravated [Unknown]
  - Drug ineffective [Unknown]
